FAERS Safety Report 13510931 (Version 1)
Quarter: 2017Q2

REPORT INFORMATION
  Report Type: Spontaneous
  Country: US (occurrence: US)
  Receive Date: 20170503
  Receipt Date: 20170503
  Transmission Date: 20170830
  Serious: Yes (Life-Threatening, Hospitalization)
  Sender: FDA-Public Use
  Company Number: None

PATIENT
  Age: 73 Year
  Sex: Female
  Weight: 96 kg

DRUGS (1)
  1. ALVIMOPAN [Suspect]
     Active Substance: ALVIMOPAN
     Indication: POSTOPERATIVE ILEUS
     Route: 048
     Dates: start: 20160421, end: 20160428

REACTIONS (1)
  - Acute myocardial infarction [None]

NARRATIVE: CASE EVENT DATE: 20160429
